FAERS Safety Report 6410885-5 (Version None)
Quarter: 2009Q4

REPORT INFORMATION
  Report Type: 
  Country: None (occurrence: None)
  Receive Date: 20091022
  Receipt Date: 20091014
  Transmission Date: 20100525
  Serious: Yes (Hospitalization)
  Sender: FDA-Public Use
  Company Number: PHHO2008FR09233

PATIENT
  Sex: Female
  Weight: 59 kg

DRUGS (3)
  1. RAD 666 RAD+TAB+CMAS [Suspect]
     Indication: BREAST CANCER
     Dosage: 5 MG, DAILY
     Route: 048
     Dates: start: 20080225, end: 20080723
  2. PACLITAXEL [Suspect]
     Dosage: UNK
     Route: 042
     Dates: start: 20080225, end: 20080723
  3. TRASTUZUMAB [Concomitant]
     Dosage: 2MG/KG
     Route: 042
     Dates: start: 20080225, end: 20080723

REACTIONS (3)
  - ALVEOLITIS ALLERGIC [None]
  - DYSPNOEA [None]
  - INTERSTITIAL LUNG DISEASE [None]
